FAERS Safety Report 15865280 (Version 4)
Quarter: 2019Q1

REPORT INFORMATION
  Report Type: Spontaneous
  Country: US (occurrence: US)
  Receive Date: 20190124
  Receipt Date: 20190329
  Transmission Date: 20190417
  Serious: Yes (Hospitalization, Other)
  Sender: FDA-Public Use
  Company Number: US-SHIRE-US201901622

PATIENT
  Age: 48 Year
  Sex: Female

DRUGS (2)
  1. GATTEX [Suspect]
     Active Substance: TEDUGLUTIDE\WATER
     Dosage: 3.5 MILLIGRAM
     Route: 058
     Dates: start: 201810
  2. GATTEX [Suspect]
     Active Substance: TEDUGLUTIDE\WATER
     Indication: SHORT-BOWEL SYNDROME
     Dosage: 0.3700 UNK UNITS
     Route: 065
     Dates: start: 20160922

REACTIONS (6)
  - Abdominal pain [Unknown]
  - Nausea [Unknown]
  - Post procedural complication [Unknown]
  - Device dislocation [Unknown]
  - Fall [Unknown]
  - Vomiting [Recovered/Resolved]

NARRATIVE: CASE EVENT DATE: 20181205
